FAERS Safety Report 4406598-1 (Version None)
Quarter: 2004Q3

REPORT INFORMATION
  Report Type: 
  Country: None (occurrence: None)
  Receive Date: 20040723
  Receipt Date: 20040712
  Transmission Date: 20050211
  Serious: Yes (Death)
  Sender: FDA-Public Use
  Company Number: JP-GLAXOSMITHKLINE-B0339142A

PATIENT
  Age: 26 Year
  Sex: Male

DRUGS (2)
  1. FLOLAN [Suspect]
     Indication: PULMONARY HYPERTENSION
     Route: 042
     Dates: start: 20030101, end: 20030101
  2. CATECHOLAMINE [Concomitant]
     Route: 065
     Dates: start: 20030101, end: 20030101

REACTIONS (1)
  - PULMONARY VENO-OCCLUSIVE DISEASE [None]
